FAERS Safety Report 18429546 (Version 5)
Quarter: 2022Q3

REPORT INFORMATION
  Report Type: Spontaneous
  Country: BE (occurrence: BE)
  Receive Date: 20201026
  Receipt Date: 20220906
  Transmission Date: 20221027
  Serious: Yes (Other)
  Sender: FDA-Public Use
  Company Number: BE-TAKEDA-2020TUS019141

PATIENT
  Age: 17 Year
  Sex: Male
  Weight: 61 kg

DRUGS (3)
  1. ADCETRIS [Suspect]
     Active Substance: BRENTUXIMAB VEDOTIN
     Indication: Hodgkin^s disease
     Dosage: UNK
     Route: 065
     Dates: start: 20200604
  2. BENDAMUSTINE HYDROCHLORIDE [Suspect]
     Active Substance: BENDAMUSTINE HYDROCHLORIDE
     Indication: Hodgkin^s disease
     Dosage: 150 MILLIGRAM, QD
     Route: 042
     Dates: start: 20200604
  3. EUSAPRIM                           /00086101/ [Concomitant]
     Indication: Product used for unknown indication
     Dosage: 1080 MILLIGRAM, 1/WEEK
     Route: 048
     Dates: start: 20200604

REACTIONS (7)
  - Disease progression [Unknown]
  - Lymphadenopathy [Unknown]
  - Hodgkin^s disease [Unknown]
  - Abdominal lymphadenopathy [Unknown]
  - Therapy partial responder [Unknown]
  - Product use in unapproved indication [Unknown]
  - Off label use [Unknown]
